FAERS Safety Report 24350218 (Version 1)
Quarter: 2024Q3

REPORT INFORMATION
  Report Type: Spontaneous
  Country: US (occurrence: None)
  Receive Date: 20240921
  Receipt Date: 20240921
  Transmission Date: 20241017
  Serious: Yes (Hospitalization)
  Sender: Public
  Company Number: None

PATIENT
  Age: 6 Year
  Sex: Female
  Weight: 27.4 kg

DRUGS (3)
  1. MERCAPTOPURINE [Suspect]
     Active Substance: MERCAPTOPURINE
     Dates: end: 20240915
  2. METHOTREXATE [Suspect]
     Active Substance: METHOTREXATE
     Dates: end: 20240905
  3. VINCRISTINE SULFATE [Suspect]
     Active Substance: VINCRISTINE SULFATE
     Dates: end: 20240904

REACTIONS (3)
  - Mucosal inflammation [None]
  - Hypophagia [None]
  - Pain [None]

NARRATIVE: CASE EVENT DATE: 20240911
